FAERS Safety Report 14271905 (Version 1)
Quarter: 2017Q4

REPORT INFORMATION
  Report Type: Spontaneous
  Country: US (occurrence: None)
  Receive Date: 20171211
  Receipt Date: 20171211
  Transmission Date: 20180321
  Serious: No
  Sender: FDA-Public Use
  Company Number: None

PATIENT
  Sex: Female
  Weight: 64.86 kg

DRUGS (2)
  1. HUMIRA [Suspect]
     Active Substance: ADALIMUMAB
     Indication: RHEUMATOID ARTHRITIS
     Route: 058
     Dates: start: 201710
  2. METHOTREXATE UNKNOWN GENERIC [Suspect]
     Active Substance: METHOTREXATE

REACTIONS (3)
  - Oral pain [None]
  - Therapy cessation [None]
  - Pneumonia [None]
